FAERS Safety Report 12716334 (Version 1)
Quarter: 2016Q3

REPORT INFORMATION
  Report Type: Spontaneous
  Country: US (occurrence: US)
  Receive Date: 20160906
  Receipt Date: 20160906
  Transmission Date: 20161109
  Serious: No
  Sender: FDA-Public Use
  Company Number: US-009507513-1609USA000098

PATIENT
  Age: 60 Year
  Sex: Male

DRUGS (17)
  1. ZOCOR [Suspect]
     Active Substance: SIMVASTATIN
     Dosage: UNK
     Route: 048
  2. NEURONTIN [Concomitant]
     Active Substance: GABAPENTIN
     Indication: DIABETIC NEUROPATHY
     Dosage: 1200 MG, QD
     Route: 048
     Dates: start: 200101
  3. ATENOLOL. [Concomitant]
     Active Substance: ATENOLOL
     Dosage: 50 MG, QD
     Route: 048
     Dates: start: 200001
  4. LASIX [Concomitant]
     Active Substance: FUROSEMIDE
     Indication: ARTERIOSCLEROSIS CORONARY ARTERY
     Dosage: 40 MG, QD
     Route: 048
     Dates: start: 200101
  5. ZETIA [Concomitant]
     Active Substance: EZETIMIBE
     Indication: HYPERCHOLESTEROLAEMIA
     Dosage: 10 MG, QD
     Route: 048
     Dates: start: 200001
  6. MAXZIDE [Concomitant]
     Active Substance: HYDROCHLOROTHIAZIDE\TRIAMTERENE
     Indication: HYPERTENSION
     Dosage: 25 MG, QD
     Route: 048
     Dates: start: 200001
  7. CRESTOR [Concomitant]
     Active Substance: ROSUVASTATIN CALCIUM
     Indication: HYPERCHOLESTEROLAEMIA
     Dosage: 40 MG, QD
     Route: 048
     Dates: start: 200001
  8. EFFIENT [Concomitant]
     Active Substance: PRASUGREL HYDROCHLORIDE
     Indication: ACUTE CORONARY SYNDROME
     Dosage: 10 MG, QD
     Route: 048
     Dates: start: 200101
  9. ASPIRIN. [Concomitant]
     Active Substance: ASPIRIN
     Indication: PROPHYLAXIS
     Dosage: 81 MG, QD
     Route: 048
     Dates: start: 200001
  10. TRAZODONE HYDROCHLORIDE. [Concomitant]
     Active Substance: TRAZODONE HYDROCHLORIDE
     Indication: INSOMNIA
     Dosage: 50 MG, TID
     Route: 048
     Dates: start: 200001
  11. CETRIZINE [Concomitant]
     Active Substance: CETIRIZINE HYDROCHLORIDE
     Indication: SEASONAL ALLERGY
     Dosage: 10 MG, QD
     Route: 048
     Dates: start: 200001
  12. MAGNESIUM (UNSPECIFIED) [Concomitant]
     Active Substance: MAGNESIUM
     Indication: PROPHYLAXIS
     Dosage: 400 MG, QD
     Route: 048
     Dates: start: 200101
  13. PRILOSEC [Concomitant]
     Active Substance: OMEPRAZOLE MAGNESIUM
     Indication: GASTROOESOPHAGEAL REFLUX DISEASE
     Dosage: 40 MG, QD
     Route: 048
     Dates: start: 200001
  14. METFORMIN [Concomitant]
     Active Substance: METFORMIN HYDROCHLORIDE
     Indication: DIABETES MELLITUS
     Dosage: 2000 MG, QD
     Route: 048
     Dates: start: 200301
  15. NITROGLYCERIN. [Concomitant]
     Active Substance: NITROGLYCERIN
     Indication: CHEST PAIN
     Dosage: TOTAL DAILY DOSE: 1 SPRAY, PRN
     Route: 048
     Dates: start: 200101
  16. CELEBREX [Concomitant]
     Active Substance: CELECOXIB
     Indication: OSTEOARTHRITIS
     Dosage: 200 MG, QD
     Route: 048
     Dates: start: 200001
  17. VITAMIN D [Concomitant]
     Active Substance: CHOLECALCIFEROL
     Indication: PROPHYLAXIS
     Dosage: 4000 IU, QD
     Route: 048
     Dates: start: 200101

REACTIONS (1)
  - Drug hypersensitivity [Not Recovered/Not Resolved]

NARRATIVE: CASE EVENT DATE: 2013
